FAERS Safety Report 24236433 (Version 1)
Quarter: 2024Q3

REPORT INFORMATION
  Report Type: Spontaneous
  Country: US (occurrence: US)
  Receive Date: 20240822
  Receipt Date: 20240822
  Transmission Date: 20241017
  Serious: No
  Sender: ABBVIE
  Company Number: US-ABBVIE-5884786

PATIENT
  Sex: Female
  Weight: 81.646 kg

DRUGS (1)
  1. SKYRIZI [Suspect]
     Active Substance: RISANKIZUMAB-RZAA
     Indication: Psoriasis
     Dosage: DOSAGE:150MG/ML; FORM STRENGTH: 150 MILLIGRAM
     Route: 058
     Dates: start: 2024

REACTIONS (4)
  - Injection site discharge [Not Recovered/Not Resolved]
  - Injection site haemorrhage [Recovered/Resolved]
  - Malaise [Recovered/Resolved]
  - Device issue [Not Recovered/Not Resolved]

NARRATIVE: CASE EVENT DATE: 20240101
